FAERS Safety Report 12094938 (Version 1)
Quarter: 2016Q1

REPORT INFORMATION
  Report Type: Spontaneous
  Country: US (occurrence: US)
  Receive Date: 20160219
  Receipt Date: 20160219
  Transmission Date: 20160526
  Serious: Yes (Life-Threatening, Hospitalization, Other)
  Sender: FDA-Public Use
  Company Number: US-KADMON PHARMACEUTICALS, LLC-KAD201602-000619

PATIENT
  Age: 61 Year
  Sex: Female
  Weight: 73.16 kg

DRUGS (11)
  1. NIFEDIPINE. [Concomitant]
     Active Substance: NIFEDIPINE
     Dosage: EXTENDED RELEASE TABLET
     Route: 048
     Dates: start: 20150121
  2. COZAAR [Concomitant]
     Active Substance: LOSARTAN POTASSIUM
     Route: 048
  3. METFORMIN EXTENDED RELEASE 24 HR [Concomitant]
     Dosage: TABLET; EXTENDED RELEASE 24 HR
     Route: 048
     Dates: start: 2011
  4. SYNTHROID [Concomitant]
     Active Substance: LEVOTHYROXINE SODIUM
     Dosage: TABLET
     Route: 048
  5. RIBAVIRIN. [Suspect]
     Active Substance: RIBAVIRIN
     Indication: HEPATITIS C
     Dosage: TABLET
     Route: 048
     Dates: start: 20150803
  6. CHLOR-TRIMETON 4 MG [Concomitant]
     Indication: HYPERSENSITIVITY
     Route: 048
  7. CHLOR-TRIMETON 4 MG [Concomitant]
     Indication: NASOPHARYNGITIS
  8. LEVEMIR [Concomitant]
     Active Substance: INSULIN DETEMIR
     Route: 058
  9. FLONASE 50 MICROCI [Concomitant]
     Dosage: SUSPENSION AND SOLUTION FOR SPRAY; 1 SPRAY EACH NOSTRIL
  10. COLACE [Concomitant]
     Active Substance: DOCUSATE SODIUM
     Dosage: CAPSULE
     Route: 048
     Dates: start: 20150806
  11. VIEKIRA PAK [Suspect]
     Active Substance: DASABUVIR\OMBITASVIR\PARITAPREVIR\RITONAVIR
     Indication: HEPATITIS C
     Route: 048
     Dates: start: 20150803, end: 20150812

REACTIONS (11)
  - Lactic acidosis [Recovered/Resolved]
  - Respiratory distress [Recovered/Resolved]
  - Tachycardia [Unknown]
  - White blood cell count increased [Unknown]
  - Pulmonary oedema [Unknown]
  - Diverticulitis [Unknown]
  - Tachypnoea [Unknown]
  - Dyspnoea [Unknown]
  - Respiratory failure [Unknown]
  - Systemic inflammatory response syndrome [Unknown]
  - Hypoxia [Unknown]

NARRATIVE: CASE EVENT DATE: 201508
